FAERS Safety Report 15189257 (Version 5)
Quarter: 2019Q3

REPORT INFORMATION
  Report Type: Spontaneous
  Country: US (occurrence: US)
  Receive Date: 20180724
  Receipt Date: 20190928
  Transmission Date: 20191004
  Serious: Yes (Congenital Anomaly, Other)
  Sender: FDA-Public Use
  Company Number: PHEH2018US029549

PATIENT
  Sex: Female

DRUGS (1)
  1. ZOFRAN [Suspect]
     Active Substance: ONDANSETRON HYDROCHLORIDE
     Indication: FOETAL EXPOSURE DURING PREGNANCY
     Dosage: MOTHER DOSE: 04 MG, Q8H
     Route: 064

REACTIONS (36)
  - Foetal exposure during pregnancy [Unknown]
  - Arthropod bite [Unknown]
  - Rhinitis [Unknown]
  - Upper respiratory tract infection [Unknown]
  - Abdominal pain upper [Unknown]
  - Dermatitis [Unknown]
  - Pain in extremity [Unknown]
  - Pulmonary valve incompetence [Unknown]
  - Emotional distress [Unknown]
  - Sinus arrhythmia [Unknown]
  - Ill-defined disorder [Unknown]
  - Ear pain [Unknown]
  - Ligament sprain [Unknown]
  - Atrial septal defect [Unknown]
  - Heart disease congenital [Unknown]
  - Congenital scleral disorder [Unknown]
  - Failure to thrive [Unknown]
  - Anxiety [Unknown]
  - Pain [Unknown]
  - Bronchitis [Unknown]
  - Sinusitis [Unknown]
  - Pneumonia bacterial [Unknown]
  - Injury [Unknown]
  - Gastroenteritis [Unknown]
  - Skin abrasion [Unknown]
  - Rhinitis allergic [Unknown]
  - Tachycardia [Unknown]
  - Anomalous pulmonary venous connection [Unknown]
  - Abdominal pain [Unknown]
  - Hyperglycaemia [Unknown]
  - Cardiac murmur [Unknown]
  - Otitis media [Unknown]
  - Headache [Unknown]
  - Tricuspid valve incompetence [Unknown]
  - Cerumen impaction [Unknown]
  - Conjunctivitis allergic [Unknown]
